FAERS Safety Report 10646858 (Version 2)
Quarter: 2014Q4

REPORT INFORMATION
  Report Type: Spontaneous
  Country: IT (occurrence: JP)
  Receive Date: 20141211
  Receipt Date: 20141211
  Transmission Date: 20150529
  Serious: Yes (Death)
  Sender: FDA-Public Use
  Company Number: IT-SIGMA-TAU US-2014STPI000619

PATIENT
  Sex: Male

DRUGS (17)
  1. MECOBALAMIN [Concomitant]
     Active Substance: METHYLCOBALAMIN
     Indication: PRODUCT USED FOR UNKNOWN INDICATION
     Dosage: 1500 NG, UNK
     Dates: end: 20140930
  2. TRIAZOLAM. [Concomitant]
     Active Substance: TRIAZOLAM
     Indication: PRODUCT USED FOR UNKNOWN INDICATION
     Dosage: 0.25 MG, UNK
     Dates: end: 20140930
  3. CALCITROL [Concomitant]
     Active Substance: CALCITRIOL
     Indication: PRODUCT USED FOR UNKNOWN INDICATION
     Dosage: 1.5 NG, UNK
     Dates: end: 20140717
  4. CALCITROL [Concomitant]
     Active Substance: CALCITRIOL
     Dosage: 0.5 UNK, UNK
     Dates: start: 20140724, end: 20140930
  5. REBAMIPIDE [Concomitant]
     Active Substance: REBAMIPIDE
     Indication: PRODUCT USED FOR UNKNOWN INDICATION
     Dosage: 300 MG, UNK
     Dates: end: 20140930
  6. SENNA [Concomitant]
     Active Substance: SENNA LEAF\SENNOSIDES\SENNOSIDES A AND B
     Indication: PRODUCT USED FOR UNKNOWN INDICATION
     Dosage: 1 G, UNK
     Dates: end: 20140930
  7. AMINO ACID 14S [Concomitant]
     Indication: PRODUCT USED FOR UNKNOWN INDICATION
     Dosage: 200 ML, UNK
     Dates: end: 20140715
  8. CARNITOR [Suspect]
     Active Substance: LEVOCARNITINE
     Indication: CARNITINE DEFICIENCY
     Dosage: 1000 MG, QW
     Route: 042
     Dates: start: 20140705, end: 20140816
  9. LANSOPRAZOLE. [Concomitant]
     Active Substance: LANSOPRAZOLE
     Indication: PRODUCT USED FOR UNKNOWN INDICATION
     Dosage: 15 MG, UNK
     Dates: end: 20140930
  10. IRON OXIDES [Concomitant]
     Active Substance: FERRIC OXIDE RED
     Indication: PRODUCT USED FOR UNKNOWN INDICATION
     Dosage: 40 MG, UNK
     Dates: end: 20140814
  11. DIGOXIN. [Concomitant]
     Active Substance: DIGOXIN
     Indication: PRODUCT USED FOR UNKNOWN INDICATION
     Dosage: 62.5 NG, UNK
     Dates: end: 20140930
  12. DARBEPOETIN ALFA [Concomitant]
     Active Substance: DARBEPOETIN ALFA
     Indication: PRODUCT USED FOR UNKNOWN INDICATION
     Dosage: 80 NG, UNK
     Dates: end: 20140930
  13. PRECIPITATED CALCIUM CARBONATE [Concomitant]
     Active Substance: CALCIUM CARBONATE
     Indication: PRODUCT USED FOR UNKNOWN INDICATION
     Dosage: 1500 MG, UNK
     Dates: end: 20140930
  14. CARNITOR [Suspect]
     Active Substance: LEVOCARNITINE
     Dosage: 1000 MG, BIW
     Route: 042
     Dates: start: 20140819, end: 20140930
  15. AMINO ACID 14S [Concomitant]
     Dosage: 200 ML, UNK
     Dates: start: 20140920, end: 20140930
  16. BIFIDOBACTERIUM BIFIDUM [Concomitant]
     Indication: PRODUCT USED FOR UNKNOWN INDICATION
     Dosage: 3 G, UNK
     Dates: start: 20140902, end: 20140930
  17. BIFIDOBACTERIUM BIFIDUM [Concomitant]
     Dosage: 36 MG, UNK
     Dates: start: 20140911, end: 20140930

REACTIONS (1)
  - Hepatocellular carcinoma [Fatal]

NARRATIVE: CASE EVENT DATE: 2014
